FAERS Safety Report 13914255 (Version 1)
Quarter: 2017Q3

REPORT INFORMATION
  Report Type: Spontaneous
  Country: US (occurrence: US)
  Receive Date: 20170828
  Receipt Date: 20170828
  Transmission Date: 20171127
  Serious: No
  Sender: FDA-Public Use
  Company Number: US-ROCHE-1138067

PATIENT
  Age: 52 Year
  Sex: Male
  Weight: 92.62 kg

DRUGS (8)
  1. HISTA-VENT DA [Concomitant]
     Route: 065
  2. HISTA-VENT DA [Concomitant]
     Route: 065
  3. ANDRODERM [Concomitant]
     Active Substance: TESTOSTERONE
     Dosage: FORM: PATCH
     Route: 065
  4. FLONASE [Concomitant]
     Active Substance: FLUTICASONE PROPIONATE
  5. NUTROPIN AQ [Suspect]
     Active Substance: SOMATROPIN
     Indication: HYPOTHALAMO-PITUITARY DISORDER
     Dosage: DOSE: 0.11CC
     Route: 058
     Dates: start: 19990326
  6. TIMOPTIC-XE [Concomitant]
     Active Substance: TIMOLOL MALEATE
     Dosage: DOSE: 2 GTT OU
     Route: 065
  7. VIAGRA [Concomitant]
     Active Substance: SILDENAFIL CITRATE
     Route: 065
  8. SYNTHROID [Concomitant]
     Active Substance: LEVOTHYROXINE SODIUM
     Route: 065

REACTIONS (3)
  - Malaise [Unknown]
  - Erectile dysfunction [Unknown]
  - Nasal congestion [Unknown]

NARRATIVE: CASE EVENT DATE: 20000117
